FAERS Safety Report 9251737 (Version 1)
Quarter: 2013Q1

REPORT INFORMATION
  Report Type: Spontaneous
  Country: US (occurrence: None)
  Receive Date: 20130305
  Receipt Date: 20130305
  Transmission Date: 20140127
  Serious: Yes (Other)
  Sender: FDA-Public Use
  Company Number: 163-21880-12091255

PATIENT
  Age: 71 Year
  Sex: Female
  Weight: 91.17 kg

DRUGS (11)
  1. FLEXERIL (CYCLOBENZAPRINE HYDROCHLORIDE) [Concomitant]
  2. LISINOPRIL (LISINOPRIL) [Concomitant]
  3. VITAMINS [Concomitant]
  4. PANTOPRAZOLE (PANTOPRAZOLE) [Concomitant]
  5. PRAVASTATIN (PRAVASTATIN) [Concomitant]
  6. VITAMIN D (ERGOCALCIFEROL) [Concomitant]
  7. REVLIMID (LENALIDOMIDE) (25 MILLIGRAM, CAPSULES) [Suspect]
     Indication: PLASMA CELL MYELOMA
     Route: 048
     Dates: start: 20090409
  8. ACYCLOVIR (ACICLOVIR) [Concomitant]
  9. CELEBREX (CELECOXIB) [Concomitant]
  10. CLONAZEPAM (CLONAZEPAM) [Concomitant]
  11. CYMBALTA (DULOXETINE HYDROCHLORIDE) [Concomitant]

REACTIONS (1)
  - Plantar fasciitis [None]
